FAERS Safety Report 6766237-1 (Version None)
Quarter: 2010Q2

REPORT INFORMATION
  Report Type: 
  Country: None (occurrence: None)
  Receive Date: 20100611
  Receipt Date: 20100608
  Transmission Date: 20101027
  Serious: Yes (Hospitalization, Other)
  Sender: FDA-Public Use
  Company Number: US-CEPHALON-2010003127

PATIENT
  Age: 70 Year
  Sex: Male

DRUGS (2)
  1. TREANDA [Suspect]
     Indication: CHRONIC LYMPHOCYTIC LEUKAEMIA
     Route: 042
  2. RITUXAN [Concomitant]

REACTIONS (3)
  - CREATININE RENAL CLEARANCE [None]
  - FEBRILE NEUTROPENIA [None]
  - PNEUMONIA [None]
